FAERS Safety Report 9059171 (Version 1)
Quarter: 2013Q1

REPORT INFORMATION
  Report Type: Spontaneous
  Country: US (occurrence: US)
  Receive Date: 20130211
  Receipt Date: 20130211
  Transmission Date: 20140127
  Serious: No
  Sender: FDA-Public Use
  Company Number: US-BRISTOL-MYERS SQUIBB COMPANY-17129701

PATIENT
  Age: 61 Year
  Sex: Male

DRUGS (4)
  1. KOMBIGLYZE XR [Suspect]
  2. METFORMIN HCL [Suspect]
  3. GLUCOPHAGE [Suspect]
  4. INSULIN [Suspect]

REACTIONS (2)
  - Hypoglycaemia [Unknown]
  - Medication error [Unknown]
